FAERS Safety Report 7421164-1 (Version None)
Quarter: 2011Q2

REPORT INFORMATION
  Report Type: 
  Country: None (occurrence: None)
  Receive Date: 20110418
  Receipt Date: 20110415
  Transmission Date: 20111010
  Serious: No
  Sender: FDA-Public Use
  Company Number: US-PFIZER INC-2011083570

PATIENT
  Sex: Male
  Weight: 70.295 kg

DRUGS (1)
  1. ADVIL CONGESTION RELIEF [Suspect]
     Indication: SINUSITIS
     Dosage: UNK
     Route: 048
     Dates: start: 20110301, end: 20110301

REACTIONS (7)
  - ABDOMINAL PAIN UPPER [None]
  - DECREASED APPETITE [None]
  - ABDOMINAL DISTENSION [None]
  - INSOMNIA [None]
  - MIDDLE INSOMNIA [None]
  - HEADACHE [None]
  - DIZZINESS [None]
